FAERS Safety Report 5143798-X (Version None)
Quarter: 2006Q4

REPORT INFORMATION
  Report Type: 
  Country: None (occurrence: None)
  Receive Date: 20061102
  Receipt Date: 20061102
  Transmission Date: 20070319
  Serious: Yes (Other)
  Sender: FDA-Public Use
  Company Number: None

PATIENT

DRUGS (2)
  1. JANUVIA [Suspect]
     Indication: DIABETES MELLITUS
  2. ENJUVIA [Suspect]
     Indication: HORMONE REPLACEMENT THERAPY

REACTIONS (1)
  - MEDICATION ERROR [None]
